FAERS Safety Report 7831747-2 (Version None)
Quarter: 2011Q4

REPORT INFORMATION
  Report Type: 
  Country: None (occurrence: None)
  Receive Date: 20111021
  Receipt Date: 20111011
  Transmission Date: 20120403
  Serious: Yes (Life-Threatening, Hospitalization)
  Sender: FDA-Public Use
  Company Number: US-GILEAD-2011-0039343

PATIENT

DRUGS (10)
  1. ALBENDAZOLE [Concomitant]
     Dates: start: 20110228
  2. MULTIVITAMINS, COMBINATIONS [Concomitant]
  3. IBUPROFEN [Concomitant]
     Dates: start: 20110103, end: 20110106
  4. ACETAMINOPHEN [Concomitant]
     Dates: start: 20110228
  5. EMTRICITABINE/TENOFOVIR DISOPROXIL FUMARATE [Suspect]
     Route: 048
     Dates: start: 20100329, end: 20110103
  6. FOLIC ACID [Concomitant]
     Dates: start: 20110228
  7. FERROUS FUMARATE/FOLIC ACID [Concomitant]
     Dates: start: 20110228
  8. CEPHALEXIN [Concomitant]
     Dates: start: 20101108, end: 20101123
  9. METRONIDAZOLE [Concomitant]
     Dates: start: 20110131, end: 20110204
  10. DEPO-PROVERA [Concomitant]

REACTIONS (1)
  - ABORTION SPONTANEOUS [None]
